FAERS Safety Report 22098322 (Version 1)
Quarter: 2023Q1

REPORT INFORMATION
  Report Type: Spontaneous
  Country: US (occurrence: None)
  Receive Date: 20230314
  Receipt Date: 20230314
  Transmission Date: 20230418
  Serious: Yes (unspecified)
  Sender: FDA-Public Use
  Company Number: None

PATIENT
  Age: 44 Year
  Sex: Female
  Weight: 96.75 kg

DRUGS (4)
  1. MOUNJARO [Suspect]
     Active Substance: TIRZEPATIDE
     Indication: Weight decreased
     Dosage: 4 INJECTIONS 1 X WEEKLY SUBCUTANEOUS
     Route: 058
     Dates: start: 20221111, end: 20221125
  2. CYMBALTA [Concomitant]
     Active Substance: DULOXETINE HYDROCHLORIDE
  3. MIRENA [Concomitant]
     Active Substance: LEVONORGESTREL
  4. Women^s multivitamin [Concomitant]

REACTIONS (3)
  - Pruritus [None]
  - Rash macular [None]
  - Injection related reaction [None]

NARRATIVE: CASE EVENT DATE: 20221206
